FAERS Safety Report 5826641-2 (Version None)
Quarter: 2008Q3

REPORT INFORMATION
  Report Type: 
  Country: None (occurrence: None)
  Receive Date: 20080728
  Receipt Date: 20080728
  Transmission Date: 20090109
  Serious: Yes (Other)
  Sender: FDA-Public Use
  Company Number: None

PATIENT
  Age: 56 Year
  Sex: Female
  Weight: 85.2762 kg

DRUGS (1)
  1. RECLAST [Suspect]
     Indication: OSTEOPOROSIS POSTMENOPAUSAL
     Dosage: 5MG IN 100ML SOLUTION ONCE A YEAR IV DRIP, 1:00 TO 1:20 PM
     Route: 041
     Dates: start: 20080707, end: 20080707

REACTIONS (7)
  - ACTIVITIES OF DAILY LIVING IMPAIRED [None]
  - APHASIA [None]
  - ARTHRALGIA [None]
  - GAIT DISTURBANCE [None]
  - INFLAMMATION [None]
  - PAIN IN EXTREMITY [None]
  - PARAESTHESIA [None]
